FAERS Safety Report 7376928-X (Version None)
Quarter: 2011Q1

REPORT INFORMATION
  Report Type: 
  Country: None (occurrence: None)
  Receive Date: 20110328
  Receipt Date: 20110318
  Transmission Date: 20110831
  Serious: Yes (Life-Threatening, Hospitalization, Other)
  Sender: FDA-Public Use
  Company Number: GB-AMGEN-GBRSP2010010964

PATIENT
  Age: 41 Year
  Sex: Female

DRUGS (2)
  1. ETORICOXIB [Concomitant]
     Dosage: 25 MG, UNK
     Route: 048
  2. ENBREL [Suspect]
     Indication: ANKYLOSING SPONDYLITIS
     Dosage: 25 MG, 2 TIMES/WK
     Dates: start: 20080603, end: 20100818

REACTIONS (1)
  - BREAST CANCER [None]
